FAERS Safety Report 14091768 (Version 1)
Quarter: 2017Q4

REPORT INFORMATION
  Report Type: Spontaneous
  Country: US (occurrence: US)
  Receive Date: 20171013
  Receipt Date: 20171013
  Transmission Date: 20180321
  Serious: Yes (Disabling)
  Sender: FDA-Public Use
  Company Number: None

PATIENT
  Age: 88 Year
  Sex: Female
  Weight: 48.15 kg

DRUGS (5)
  1. AMLODIPINE [Concomitant]
     Active Substance: AMLODIPINE BESYLATE
  2. OSELTAMIVIR PHOSPHATE CAPSULES USP, 75MG [Suspect]
     Active Substance: OSELTAMIVIR PHOSPHATE
     Indication: INFLUENZA
     Dosage: ?          QUANTITY:1 CAPSULE(S);?
     Route: 048
     Dates: start: 20170301, end: 20170305
  3. APIXABAN [Concomitant]
     Active Substance: APIXABAN
  4. METOPROLOL SUCCINATE. [Concomitant]
     Active Substance: METOPROLOL SUCCINATE
  5. MULTIPLE  VITAMIN [Concomitant]
     Active Substance: VITAMINS

REACTIONS (9)
  - Erythema [None]
  - Muscle atrophy [None]
  - Dysphagia [None]
  - Weight decreased [None]
  - Skin discolouration [None]
  - Alopecia [None]
  - Dermatomyositis [None]
  - Pruritus generalised [None]
  - Skin hypertrophy [None]

NARRATIVE: CASE EVENT DATE: 20170301
